FAERS Safety Report 5040880-2 (Version None)
Quarter: 2006Q2

REPORT INFORMATION
  Report Type: 
  Country: None (occurrence: None)
  Receive Date: 20060629
  Receipt Date: 20060629
  Transmission Date: 20061013
  Serious: Yes (Disabling)
  Sender: FDA-Public Use
  Company Number: None

PATIENT
  Sex: Male
  Weight: 80.7403 kg

DRUGS (8)
  1. CHLORPROMAZINE [Suspect]
     Indication: SCHIZOPHRENIA
     Dosage: 600 MG HS PO
     Route: 048
     Dates: start: 19980902, end: 20060628
  2. TRAZODONE 100 MG [Suspect]
     Indication: SLEEP DISORDER
     Dosage: 300 MG HS PO
     Route: 048
     Dates: start: 19980419, end: 20060628
  3. CHLORPROMAZINE [Concomitant]
  4. MIRTAZAPINE [Concomitant]
  5. PROTONIX [Concomitant]
  6. PRAZOSIN HCL [Concomitant]
  7. TRAZODONE HCL [Concomitant]
  8. TEMAZEPAM [Concomitant]

REACTIONS (4)
  - CHEST PAIN [None]
  - CHEST X-RAY ABNORMAL [None]
  - ELECTROCARDIOGRAM QT CORRECTED INTERVAL PROLONGED [None]
  - NEOPLASM MALIGNANT [None]
